FAERS Safety Report 5894357-2 (Version None)
Quarter: 2008Q3

REPORT INFORMATION
  Report Type: 
  Country: None (occurrence: None)
  Receive Date: 20080922
  Receipt Date: 20080908
  Transmission Date: 20090109
  Serious: Yes (Other)
  Sender: FDA-Public Use
  Company Number: 237594J08USA

PATIENT
  Age: 26 Year
  Sex: Female
  Weight: 117.9352 kg

DRUGS (3)
  1. REBIF [Suspect]
     Indication: MULTIPLE SCLEROSIS
     Dosage: 44 MCG, 3 IN 1 WEEKS, SUBCUTANEOUS
     Route: 058
     Dates: start: 20060417, end: 20080813
  2. TOPAMAX [Concomitant]
  3. BACLOFEN [Concomitant]

REACTIONS (8)
  - ABDOMINAL PAIN [None]
  - CHOLELITHIASIS [None]
  - GALLBLADDER DISORDER [None]
  - LENTIGO [None]
  - LIVER DISORDER [None]
  - NAUSEA [None]
  - PYREXIA [None]
  - SPLENOMEGALY [None]
